FAERS Safety Report 8180210-0 (Version None)
Quarter: 2012Q1

REPORT INFORMATION
  Report Type: 
  Country: None (occurrence: None)
  Receive Date: 20120216
  Receipt Date: 20111021
  Transmission Date: 20120608
  Serious: Yes (Other)
  Sender: FDA-Public Use
  Company Number: 2011029364

PATIENT
  Age: 7 Year
  Sex: Male
  Weight: 27.2158 kg

DRUGS (5)
  1. VITAMIN E [Concomitant]
  2. VITAMIN D [Concomitant]
  3. HIZENTRA [Suspect]
     Indication: PRODUCT USED FOR UNKNOWN INDICATION
     Dosage: 4 G 1X/WEEK, (20 ML) 1-2 SITES,(4; 20 G 1/WEEK 1-2 SITES, SUBCUTANEOUS
     Route: 058
     Dates: start: 20110701
  4. HIZENTRA [Suspect]
     Indication: PRODUCT USED FOR UNKNOWN INDICATION
     Dosage: 4 G 1X/WEEK, (20 ML) 1-2 SITES,(4; 20 G 1/WEEK 1-2 SITES, SUBCUTANEOUS
     Route: 058
     Dates: start: 20110819
  5. LAMICTAL [Concomitant]

REACTIONS (3)
  - URTICARIA [None]
  - COGNITIVE DISORDER [None]
  - DIARRHOEA [None]
